FAERS Safety Report 20134619 (Version 2)
Quarter: 2021Q4

REPORT INFORMATION
  Report Type: Spontaneous
  Country: IT (occurrence: IT)
  Receive Date: 20211201
  Receipt Date: 20211202
  Transmission Date: 20220303
  Serious: Yes (Other)
  Sender: FDA-Public Use
  Company Number: None

PATIENT
  Age: 59 Year
  Sex: Male

DRUGS (4)
  1. PREGABALIN [Suspect]
     Active Substance: PREGABALIN
     Indication: Neuralgia
     Dosage: 25 MILLIGRAM, QD
     Route: 048
  2. PREGABALIN [Suspect]
     Active Substance: PREGABALIN
     Dosage: 25 MILLIGRAM, QD
     Route: 048
     Dates: start: 20210928, end: 20210929
  3. BRIVUDINE [Suspect]
     Active Substance: BRIVUDINE
     Indication: Herpes zoster
     Dosage: 125 MILLIGRAM, QD
     Route: 048
  4. BRIVUDINE [Suspect]
     Active Substance: BRIVUDINE
     Dosage: 125 MILLIGRAM, QD
     Route: 048
     Dates: start: 20210923, end: 20210929

REACTIONS (2)
  - Erythema [Recovering/Resolving]
  - Drug hypersensitivity [Recovering/Resolving]

NARRATIVE: CASE EVENT DATE: 20210929
